FAERS Safety Report 6086480-7 (Version None)
Quarter: 2009Q1

REPORT INFORMATION
  Report Type: 
  Country: None (occurrence: None)
  Receive Date: 20090223
  Receipt Date: 20090217
  Transmission Date: 20090719
  Serious: Yes (Life-Threatening, Disabling)
  Sender: FDA-Public Use
  Company Number: PHHY2009CO05728

PATIENT
  Age: 30 Year
  Sex: Female

DRUGS (3)
  1. SYNTOCINON [Suspect]
     Indication: UTERINE ATONY
     Dosage: INJECTION 40 UL, ONCE/SINGLE
     Route: 042
     Dates: start: 20081001, end: 20081001
  2. METHERGINE [Concomitant]
     Dosage: UNK
  3. MISOPROSTOL [Concomitant]
     Dosage: UNK

REACTIONS (4)
  - DRUG ADMINISTRATION ERROR [None]
  - DRUG INEFFECTIVE [None]
  - HYSTERECTOMY [None]
  - POSTPARTUM HAEMORRHAGE [None]
